FAERS Safety Report 9523455 (Version 1)
Quarter: 2013Q3

REPORT INFORMATION
  Report Type: Report from Study
  Country: US (occurrence: US)
  Receive Date: 20130913
  Receipt Date: 20130913
  Transmission Date: 20140515
  Serious: Yes (Death, Other)
  Sender: FDA-Public Use
  Company Number: US-PURDUE-USA-2013-0106221

PATIENT
  Age: 55 Year
  Sex: Female

DRUGS (3)
  1. OXYCONTIN (NDA 22-272) [Suspect]
     Indication: PRODUCT USED FOR UNKNOWN INDICATION
  2. OXYMORPHONE [Suspect]
     Indication: PRODUCT USED FOR UNKNOWN INDICATION
  3. BENZO-JEL BANANA [Suspect]
     Indication: PRODUCT USED FOR UNKNOWN INDICATION

REACTIONS (13)
  - Cardiac arrest [Fatal]
  - Meningitis [Unknown]
  - Sepsis [Unknown]
  - Hypovolaemia [Unknown]
  - Unresponsive to stimuli [Unknown]
  - Electrocardiogram ST segment elevation [Unknown]
  - Melaena [Unknown]
  - Hypertension [Unknown]
  - Mydriasis [Unknown]
  - Sympathomimetic effect [Unknown]
  - Tachycardia [Unknown]
  - Influenza like illness [Unknown]
  - Asthenia [Unknown]
